FAERS Safety Report 14614558 (Version 2)
Quarter: 2020Q4

REPORT INFORMATION
  Report Type: Spontaneous
  Country: JP (occurrence: JP)
  Receive Date: 20180308
  Receipt Date: 20201030
  Transmission Date: 20210113
  Serious: Yes (Other)
  Sender: FDA-Public Use
  Company Number: PHJP2018JP004912

PATIENT
  Age: 24 Year
  Sex: Female

DRUGS (1)
  1. GILENYA [Suspect]
     Active Substance: FINGOLIMOD HYDROCHLORIDE
     Indication: MULTIPLE SCLEROSIS
     Dosage: 0.5 MG, UNK
     Route: 048

REACTIONS (2)
  - Grip strength decreased [Recovering/Resolving]
  - Neuromyelitis optica spectrum disorder [Recovering/Resolving]

NARRATIVE: CASE EVENT DATE: 201801
